FAERS Safety Report 10257134 (Version 1)
Quarter: 2014Q2

REPORT INFORMATION
  Report Type: Spontaneous
  Country: CA (occurrence: CA)
  Receive Date: 20140625
  Receipt Date: 20140625
  Transmission Date: 20141212
  Serious: Yes (Life-Threatening, Hospitalization, Disabling)
  Sender: FDA-Public Use
  Company Number: CA-ROCHE-1423967

PATIENT
  Age: 11 Month
  Sex: Female
  Weight: 10 kg

DRUGS (16)
  1. NAPROSYN [Suspect]
     Indication: PRODUCT USED FOR UNKNOWN INDICATION
     Dosage: DURATION 27 DAYS
     Route: 048
  2. NAPROSYN [Suspect]
     Dosage: DURATION 17 DAYS
     Route: 048
  3. ACETAMINOPHEN [Concomitant]
  4. CEFTRIAXONE [Concomitant]
     Route: 065
  5. CLINDAMYCIN [Concomitant]
  6. FUROSEMIDE [Concomitant]
  7. HYDROCORTISONE [Concomitant]
  8. HYDROXYCHLOROQUINE [Concomitant]
  9. LEVOFLOXACIN [Concomitant]
  10. METHYLPREDNISOLONE [Concomitant]
  11. METRONIDAZOLE [Concomitant]
  12. MORPHINE [Concomitant]
  13. NAPROXEN [Concomitant]
  14. PANTOPRAZOLE [Concomitant]
  15. PREDNISONE [Concomitant]
  16. SULFAMETHOXAZOLE/TRIMETHOPRIM [Concomitant]
     Route: 065

REACTIONS (4)
  - Haemorrhagic ascites [Unknown]
  - Pancreatic pseudocyst [Unknown]
  - Pancreatitis haemorrhagic [Unknown]
  - Vascular pseudoaneurysm [Unknown]
